FAERS Safety Report 9249234 (Version 1)
Quarter: 2013Q2

REPORT INFORMATION
  Report Type: Other
  Country: GB (occurrence: GB)
  Receive Date: 20130423
  Receipt Date: 20130423
  Transmission Date: 20140414
  Serious: Yes (Hospitalization)
  Sender: FDA-Public Use
  Company Number: GB-ACTAVIS-2013-06900

PATIENT
  Age: 35 Year
  Sex: Female

DRUGS (3)
  1. PARACETAMOL (UNKNOWN) [Suspect]
     Indication: PRODUCT USED FOR UNKNOWN INDICATION
     Dosage: DAILY DOSE UNKNOWN - OVERDOSE WITH 500MG X 8 TOTAL
     Route: 048
     Dates: start: 20130315
  2. CYCLIZINE (UNKNOWN) [Suspect]
     Indication: PRODUCT USED FOR UNKNOWN INDICATION
     Dosage: DAILY DOSE UNKNOWN - OVERDOSE WITH 50 MG X 8 TOTAL
     Route: 048
     Dates: start: 20130315
  3. LEVOTHYROXINE SODIUM STAT RX [Concomitant]
     Indication: HYPOTHYROIDISM

REACTIONS (3)
  - Intentional overdose [Unknown]
  - Overdose [Unknown]
  - Intentional overdose [None]
